FAERS Safety Report 5816640-9 (Version None)
Quarter: 2008Q3

REPORT INFORMATION
  Report Type: 
  Country: None (occurrence: None)
  Receive Date: 20080721
  Receipt Date: 20080709
  Transmission Date: 20090109
  Serious: Yes (Life-Threatening, Other)
  Sender: FDA-Public Use
  Company Number: US-PFIZER INC-2008041422

PATIENT
  Sex: Female
  Weight: 67.272 kg

DRUGS (3)
  1. CELONTIN [Suspect]
     Indication: PETIT MAL EPILEPSY
  2. PHENOBARBITONE [Concomitant]
     Indication: GRAND MAL CONVULSION
  3. DILANTIN [Concomitant]
     Indication: GRAND MAL CONVULSION

REACTIONS (4)
  - ATRIOVENTRICULAR BLOCK FIRST DEGREE [None]
  - DIZZINESS [None]
  - NECK INJURY [None]
  - PALPITATIONS [None]
